FAERS Safety Report 19622778 (Version 1)
Quarter: 2021Q3

REPORT INFORMATION
  Report Type: Spontaneous
  Country: US (occurrence: US)
  Receive Date: 20210728
  Receipt Date: 20210728
  Transmission Date: 20211014
  Serious: No
  Sender: FDA-Public Use
  Company Number: None

PATIENT
  Age: 72 Year
  Sex: Female
  Weight: 60.33 kg

DRUGS (14)
  1. HYDROXYUREA. [Suspect]
     Active Substance: HYDROXYUREA
     Indication: PLATELET COUNT INCREASED
     Route: 048
     Dates: start: 19880808
  2. ACYCLOVIR. [Concomitant]
     Active Substance: ACYCLOVIR
  3. VORICONAZOLE. [Concomitant]
     Active Substance: VORICONAZOLE
  4. FOLIC ACID. [Concomitant]
     Active Substance: FOLIC ACID
  5. MODERNA COVID?19 VACCINE [Suspect]
     Active Substance: CX-024414
  6. PROBIOTIC [Concomitant]
     Active Substance: PROBIOTICS NOS
  7. VITAMIN B12 [Concomitant]
     Active Substance: CYANOCOBALAMIN
  8. ONDANSETRON [Concomitant]
     Active Substance: ONDANSETRON
  9. ELIQUIS [Concomitant]
     Active Substance: APIXABAN
  10. VIT D [Concomitant]
     Active Substance: VITAMIN D NOS
  11. HYDREA [Concomitant]
     Active Substance: HYDROXYUREA
  12. HYDROXYUREA. [Suspect]
     Active Substance: HYDROXYUREA
  13. PEPCID [Concomitant]
     Active Substance: FAMOTIDINE
  14. PREDNISONE. [Concomitant]
     Active Substance: PREDNISONE

REACTIONS (6)
  - Pain of skin [None]
  - Peripheral swelling [None]
  - Skin ulcer [None]
  - Toxicity to various agents [None]
  - Sunburn [None]
  - Swelling face [None]

NARRATIVE: CASE EVENT DATE: 20210605
